FAERS Safety Report 13342970 (Version 2)
Quarter: 2018Q1

REPORT INFORMATION
  Report Type: Spontaneous
  Country: US (occurrence: US)
  Receive Date: 20170316
  Receipt Date: 20180306
  Transmission Date: 20180508
  Serious: Yes (Hospitalization)
  Sender: FDA-Public Use
  Company Number: US-ACTELION-A-US2017-150832

PATIENT
  Age: 64 Year
  Sex: Male

DRUGS (11)
  1. TRACLEER [Suspect]
     Active Substance: BOSENTAN
     Indication: PULMONARY ARTERIAL HYPERTENSION
     Dosage: 125 MG, BID
     Route: 048
     Dates: start: 20120410
  2. MOTRIN IB [Concomitant]
     Active Substance: IBUPROFEN
  3. DEPAKOTE [Concomitant]
     Active Substance: DIVALPROEX SODIUM
  4. REVATIO [Concomitant]
     Active Substance: SILDENAFIL CITRATE
  5. PROTONIX [Concomitant]
     Active Substance: PANTOPRAZOLE SODIUM
  6. TYVASO [Concomitant]
     Active Substance: TREPROSTINIL
     Dosage: 9 PUFF, QID
     Dates: start: 20120409
  7. LEVOTHYROXINE. [Concomitant]
     Active Substance: LEVOTHYROXINE
  8. HALOPERIDOL. [Concomitant]
     Active Substance: HALOPERIDOL
  9. TRILEPTAL [Concomitant]
     Active Substance: OXCARBAZEPINE
  10. VISTARIL [Concomitant]
     Active Substance: HYDROXYZINE PAMOATE
  11. ZYPREXA [Concomitant]
     Active Substance: OLANZAPINE

REACTIONS (4)
  - Unresponsive to stimuli [Recovered/Resolved]
  - Oxygen saturation decreased [Not Recovered/Not Resolved]
  - Cyanosis [Unknown]
  - Dyspnoea [Not Recovered/Not Resolved]

NARRATIVE: CASE EVENT DATE: 20170305
